FAERS Safety Report 9330615 (Version 2)
Quarter: 2013Q3

REPORT INFORMATION
  Report Type: Spontaneous
  Country: BR (occurrence: BR)
  Receive Date: 20130605
  Receipt Date: 20130911
  Transmission Date: 20140515
  Serious: Yes (Other)
  Sender: FDA-Public Use
  Company Number: PHHY2013BR056470

PATIENT
  Age: 64 Year
  Sex: Male
  Weight: 85 kg

DRUGS (4)
  1. DIOVAN AMLO FIX [Suspect]
     Indication: HYPERTENSION
     Dosage: 1 DF (80/5MG), DAILY
     Route: 048
  2. CALCIUM SANDOZ+VIT.C [Suspect]
  3. OMEGA 3 [Concomitant]
     Dosage: 1 DF, DAILY
     Route: 048
  4. CENTRUM [Concomitant]
     Dosage: 1 DF, DAILY
     Route: 048

REACTIONS (2)
  - Guillain-Barre syndrome [Recovering/Resolving]
  - Paraesthesia [Not Recovered/Not Resolved]
